FAERS Safety Report 5014604-9 (Version None)
Quarter: 2006Q2

REPORT INFORMATION
  Report Type: 
  Country: None (occurrence: None)
  Receive Date: 20060522
  Receipt Date: 20060505
  Transmission Date: 20061013
  Serious: Yes (Death)
  Sender: FDA-Public Use
  Company Number: WSDF-00549

PATIENT
  Sex: Male

DRUGS (1)
  1. WINRHO SDF [Suspect]

REACTIONS (3)
  - CARDIAC ARREST [None]
  - HAEMOLYSIS [None]
  - MYOCARDIAL INFARCTION [None]
